FAERS Safety Report 5355795-X (Version None)
Quarter: 2007Q2

REPORT INFORMATION
  Report Type: 
  Country: None (occurrence: None)
  Receive Date: 20070611
  Receipt Date: 20070611
  Transmission Date: 20071010
  Serious: No
  Sender: FDA-Public Use
  Company Number: None

PATIENT
  Age: 27 Year
  Sex: Female
  Weight: 58.9676 kg

DRUGS (1)
  1. FOLLISTIM [Suspect]
     Indication: INFERTILITY
     Dosage: 50IU ONCE DAILY IM
     Route: 030
     Dates: start: 20060917, end: 20061221

REACTIONS (2)
  - COAGULOPATHY [None]
  - CONTUSION [None]
